FAERS Safety Report 19865168 (Version 1)
Quarter: 2021Q3

REPORT INFORMATION
  Report Type: Spontaneous
  Country: CL (occurrence: CL)
  Receive Date: 20210921
  Receipt Date: 20210921
  Transmission Date: 20211014
  Serious: Yes (Life-Threatening)
  Sender: FDA-Public Use
  Company Number: CL-GLAXOSMITHKLINE-CL2021GSK191154

PATIENT
  Age: 5 Year
  Sex: Male

DRUGS (6)
  1. CETIRIZINE [Concomitant]
     Active Substance: CETIRIZINE HYDROCHLORIDE
     Indication: RHINITIS ALLERGIC
     Dosage: 5 MG, 1D
  2. FLIXONASE [Suspect]
     Active Substance: FLUTICASONE PROPIONATE
     Indication: RHINITIS ALLERGIC
     Dosage: 50 UG,AN APPLICATION IN EVERY NOSTRIL EVERY 12 HS (SUSPENSION FOR NEBULIZATION)
     Route: 045
  3. LAMIVUDINE. [Concomitant]
     Active Substance: LAMIVUDINE
     Indication: HIV INFECTION
     Dosage: 5 MG/KG, BID
  4. FLIXONASE [Interacting]
     Active Substance: FLUTICASONE PROPIONATE
     Dosage: 25 UG,AN APPLICATION IN EVERY NOSTRIL EVERY 12 HS (SUSPENSION FOR NEBULIZATION)
     Route: 045
  5. KALETRA [Interacting]
     Active Substance: LOPINAVIR\RITONAVIR
     Indication: HIV INFECTION
     Dosage: 300 MG/M2, BID
  6. ZIDOVUDINE. [Concomitant]
     Active Substance: ZIDOVUDINE
     Indication: HIV INFECTION
     Dosage: 200 MG/M2, BID

REACTIONS (7)
  - Dyslipidaemia [Recovered/Resolved]
  - Insulin resistance [Recovered/Resolved]
  - Cushingoid [Recovered/Resolved]
  - Drug interaction [Unknown]
  - Secondary adrenocortical insufficiency [Recovered/Resolved]
  - Weight increased [Recovered/Resolved]
  - Hypothalamic pituitary adrenal axis suppression [Recovered/Resolved]
